FAERS Safety Report 10549802 (Version 1)
Quarter: 2014Q4

REPORT INFORMATION
  Report Type: Report from Study
  Country: BR (occurrence: BR)
  Receive Date: 20141028
  Receipt Date: 20141028
  Transmission Date: 20150529
  Serious: Yes (Death, Hospitalization)
  Sender: FDA-Public Use
  Company Number: BR-BAYER-2014-155105

PATIENT
  Age: 64 Year
  Sex: Male
  Weight: 49.89 kg

DRUGS (1)
  1. NEXAVAR [Suspect]
     Active Substance: SORAFENIB
     Indication: HEPATIC CANCER
     Dosage: 4 DF, QD
     Route: 048
     Dates: end: 20140806

REACTIONS (4)
  - Hepatic cancer [Fatal]
  - Multi-organ failure [Fatal]
  - Hypoglycaemia [Not Recovered/Not Resolved]
  - General physical health deterioration [Not Recovered/Not Resolved]

NARRATIVE: CASE EVENT DATE: 20140805
